FAERS Safety Report 4938503-3 (Version None)
Quarter: 2006Q1

REPORT INFORMATION
  Report Type: 
  Country: None (occurrence: None)
  Receive Date: 20060308
  Receipt Date: 20060308
  Transmission Date: 20060701
  Serious: Yes (Other)
  Sender: FDA-Public Use
  Company Number: None

PATIENT
  Sex: Female
  Weight: 85.7298 kg

DRUGS (1)
  1. SEROQUEL [Suspect]
     Indication: ANXIETY
     Dates: start: 20050601, end: 20060307

REACTIONS (3)
  - DIZZINESS [None]
  - DRUG DEPENDENCE [None]
  - WEIGHT INCREASED [None]
